FAERS Safety Report 6424160-6 (Version None)
Quarter: 2009Q4

REPORT INFORMATION
  Report Type: 
  Country: None (occurrence: None)
  Receive Date: 20091102
  Receipt Date: 20091023
  Transmission Date: 20100525
  Serious: Yes (Hospitalization)
  Sender: FDA-Public Use
  Company Number: BR-ABBOTT-09P-020-0604662-00

PATIENT
  Sex: Female
  Weight: 54 kg

DRUGS (12)
  1. HUMIRA [Suspect]
     Indication: RHEUMATOID ARTHRITIS
     Route: 058
     Dates: start: 20080101, end: 20090801
  2. METHOTREXATE [Suspect]
     Indication: DRUG USE FOR UNKNOWN INDICATION
  3. FOLIC ACID [Concomitant]
     Indication: DRUG USE FOR UNKNOWN INDICATION
  4. TRAMADOL HYDROCHLORIDE [Concomitant]
     Indication: DRUG USE FOR UNKNOWN INDICATION
  5. ACTONEL [Concomitant]
     Indication: DRUG USE FOR UNKNOWN INDICATION
  6. ARAVA [Concomitant]
     Indication: DRUG USE FOR UNKNOWN INDICATION
  7. LIVIAL [Concomitant]
     Indication: DRUG USE FOR UNKNOWN INDICATION
  8. MOTILIUM [Concomitant]
     Indication: DRUG USE FOR UNKNOWN INDICATION
  9. LANSOPRAZOLE [Concomitant]
     Indication: GASTRIC DISORDER
  10. CALCIUM PHOSPHATE/COLECALCIFEROL (OSTEONUTRI) [Concomitant]
     Indication: DRUG USE FOR UNKNOWN INDICATION
  11. UNKNOWN MAGISTRAL FORMULA [Concomitant]
     Indication: DRUG USE FOR UNKNOWN INDICATION
  12. MELOXICAM [Concomitant]
     Indication: DRUG USE FOR UNKNOWN INDICATION

REACTIONS (1)
  - HYPOTENSION [None]
